FAERS Safety Report 7333416-4 (Version None)
Quarter: 2011Q1

REPORT INFORMATION
  Report Type: 
  Country: None (occurrence: None)
  Receive Date: 20110304
  Receipt Date: 20110218
  Transmission Date: 20110831
  Serious: Yes (Other)
  Sender: FDA-Public Use
  Company Number: US-CELGENEUS-163-21880-11011496

PATIENT
  Age: 57 Year
  Sex: Male
  Weight: 100 kg

DRUGS (9)
  1. REVLIMID [Suspect]
     Indication: PROSTATE CANCER
     Dosage: 25 MILLIGRAM
     Route: 048
     Dates: start: 20100830
  2. DOCETAXEL [Suspect]
     Indication: PROSTATE CANCER
     Dosage: 75 MILLIGRAM/SQ. METER
     Route: 051
     Dates: start: 20100830
  3. BEVACIZUMAB [Suspect]
     Dosage: 15 MILLIGRAM/SQ. METER
     Route: 051
     Dates: start: 20110103
  4. DOCETAXEL [Suspect]
     Dosage: 75 MILLIGRAM/SQ. METER
     Route: 051
     Dates: start: 20110124, end: 20100124
  5. REVLIMID [Suspect]
     Dosage: 25 MILLIGRAM
     Route: 048
     Dates: start: 20110124, end: 20110206
  6. PREDNISONE [Suspect]
     Indication: PROSTATE CANCER
     Dosage: 5 MILLIGRAM
     Route: 048
     Dates: start: 20100830
  7. BEVACIZUMAB [Suspect]
     Indication: PROSTATE CANCER
     Dosage: 15 MILLIGRAM/SQ. METER
     Route: 051
     Dates: start: 20100830
  8. PREDNISONE [Suspect]
     Dosage: 5 MILLIGRAM
     Route: 048
     Dates: start: 20110124, end: 20110213
  9. ZOLEDRONIC ACID [Suspect]
     Route: 065

REACTIONS (2)
  - OSTEONECROSIS OF JAW [None]
  - GINGIVAL INFECTION [None]
